FAERS Safety Report 11321862 (Version 1)
Quarter: 2015Q3

REPORT INFORMATION
  Report Type: Spontaneous
  Country: US (occurrence: US)
  Receive Date: 20150729
  Receipt Date: 20150729
  Transmission Date: 20151125
  Serious: Yes (Hospitalization)
  Sender: FDA-Public Use
  Company Number: US-BAXTER-2015BAX029818

PATIENT
  Sex: Male

DRUGS (1)
  1. DIANEAL LOW CALCIUM PERITONEAL DIALYSIS SOLUTION WITH DEXTROSE [Suspect]
     Active Substance: CALCIUM CHLORIDE\DEXTROSE\MAGNESIUM CHLORIDE\SODIUM CHLORIDE\SODIUM LACTATE
     Indication: PERITONEAL DIALYSIS
     Route: 033

REACTIONS (7)
  - Hypophagia [Recovering/Resolving]
  - Vomiting [Not Recovered/Not Resolved]
  - Syncope [Recovering/Resolving]
  - Blood pressure fluctuation [Recovering/Resolving]
  - Abdominal pain upper [Recovering/Resolving]
  - Nausea [Not Recovered/Not Resolved]
  - Constipation [Recovering/Resolving]
